FAERS Safety Report 6069779-X (Version None)
Quarter: 2009Q1

REPORT INFORMATION
  Report Type: 
  Country: None (occurrence: None)
  Receive Date: 20090204
  Receipt Date: 20090204
  Transmission Date: 20090719
  Serious: Yes (Other)
  Sender: FDA-Public Use
  Company Number: None

PATIENT
  Age: 44 Year
  Sex: Female
  Weight: 56.6996 kg

DRUGS (1)
  1. LOESTRIN 24 FE [Suspect]
     Indication: MENORRHAGIA
     Dosage: 1 PILL DAY PO
     Route: 048
     Dates: start: 20081206, end: 20090118

REACTIONS (3)
  - LIMB DISCOMFORT [None]
  - OEDEMA PERIPHERAL [None]
  - VARICOSE VEIN [None]
